FAERS Safety Report 7878754-1 (Version None)
Quarter: 2011Q4

REPORT INFORMATION
  Report Type: 
  Country: None (occurrence: None)
  Receive Date: 20111028
  Receipt Date: 20111019
  Transmission Date: 20120403
  Serious: Yes (Hospitalization)
  Sender: FDA-Public Use
  Company Number: 2011100116

PATIENT
  Age: 61 Year
  Sex: Male

DRUGS (7)
  1. FUROSEMIDE [Suspect]
     Indication: RENAL FAILURE ACUTE
     Dosage: 80 MG (40 MG, 2 IN 1 D)
  2. ATENOLOL [Concomitant]
  3. AMLODIPINE [Concomitant]
  4. TORSEMIDE [Suspect]
     Indication: RENAL FAILURE ACUTE
     Dosage: 40 MG (20 MG, 2 IN 1 D);
  5. METOLAZONE [Suspect]
     Indication: RENAL FAILURE ACUTE
     Dosage: 5 MG (5 MG, 1 IN 1 D)
  6. AMILORIDE HYDROCHLORIDE [Concomitant]
  7. ASPIRIN [Concomitant]

REACTIONS (2)
  - RENAL FAILURE CHRONIC [None]
  - HAEMODIALYSIS [None]
